FAERS Safety Report 20761612 (Version 4)
Quarter: 2022Q3

REPORT INFORMATION
  Report Type: Report from Study
  Country: FR (occurrence: FR)
  Receive Date: 20220428
  Receipt Date: 20220718
  Transmission Date: 20221026
  Serious: Yes (Hospitalization, Other)
  Sender: FDA-Public Use
  Company Number: FR-SA-SAC20220427000711

PATIENT
  Age: 79 Year
  Sex: Female
  Weight: 60 kg

DRUGS (15)
  1. ISATUXIMAB [Suspect]
     Active Substance: ISATUXIMAB
     Indication: Plasma cell myeloma
     Dosage: 20 MG
     Dates: start: 20220208, end: 20220208
  2. ISATUXIMAB [Suspect]
     Active Substance: ISATUXIMAB
     Dosage: 20 MG
     Dates: start: 20220412, end: 20220418
  3. LENALIDOMIDE [Suspect]
     Active Substance: LENALIDOMIDE
     Indication: Plasma cell myeloma
     Dosage: 10 MG
     Dates: start: 20220208, end: 20220208
  4. LENALIDOMIDE [Suspect]
     Active Substance: LENALIDOMIDE
     Dosage: 15 MG
     Dates: start: 20220412, end: 20220418
  5. DEXAMETHASONE [Concomitant]
     Active Substance: DEXAMETHASONE
     Indication: Plasma cell myeloma
     Dosage: 40 MG
     Dates: start: 20220208, end: 20220208
  6. DEXAMETHASONE [Concomitant]
     Active Substance: DEXAMETHASONE
     Dosage: 40 UNK
     Dates: start: 20220412, end: 20220418
  7. BACTRIM [Concomitant]
     Active Substance: SULFAMETHOXAZOLE\TRIMETHOPRIM
     Indication: Herpes virus infection
     Dosage: 400/80MG
     Route: 048
  8. VALACYCLOVIR [Concomitant]
     Active Substance: VALACYCLOVIR HYDROCHLORIDE
     Indication: Herpes virus infection
     Dosage: 500 MG
     Route: 048
  9. APIXABAN [Concomitant]
     Active Substance: APIXABAN
     Dosage: 2.5 MG
  10. BISOPROLOL [Concomitant]
     Active Substance: BISOPROLOL
     Indication: Hypertension
     Dosage: 1.25 MG
     Route: 048
  11. ESOMEPRAZOLE SODIUM [Concomitant]
     Active Substance: ESOMEPRAZOLE SODIUM
     Indication: Gastrooesophageal reflux disease
     Dosage: 40 MG
     Route: 048
  12. ESIDREX [Concomitant]
     Active Substance: HYDROCHLOROTHIAZIDE
  13. ZETEX [Concomitant]
     Dosage: 1 G
  14. OMEPRAZOLE [Concomitant]
     Active Substance: OMEPRAZOLE
  15. ZYMED [Concomitant]

REACTIONS (2)
  - COVID-19 [Recovered/Resolved]
  - Transient ischaemic attack [Recovered/Resolved with Sequelae]

NARRATIVE: CASE EVENT DATE: 20220418
